FAERS Safety Report 24872087 (Version 1)
Quarter: 2025Q1

REPORT INFORMATION
  Report Type: Spontaneous
  Country: US (occurrence: US)
  Receive Date: 20250122
  Receipt Date: 20250122
  Transmission Date: 20250409
  Serious: Yes (Hospitalization, Other)
  Sender: GLAXOSMITHKLINE
  Company Number: US-GSK-US2025005025

PATIENT

DRUGS (1)
  1. BREO ELLIPTA [Suspect]
     Active Substance: FLUTICASONE FUROATE\VILANTEROL TRIFENATATE
     Indication: Asthma
     Dosage: UNK, QD, 200/25 30
     Route: 055

REACTIONS (2)
  - Pancreatitis [Unknown]
  - Respiratory syncytial virus test positive [Recovering/Resolving]

NARRATIVE: CASE EVENT DATE: 20250111
